FAERS Safety Report 6924977-5 (Version None)
Quarter: 2010Q3

REPORT INFORMATION
  Report Type: 
  Country: None (occurrence: None)
  Receive Date: 20100810
  Receipt Date: 20100720
  Transmission Date: 20110219
  Serious: Yes (Other)
  Sender: FDA-Public Use
  Company Number: JPI-P-007620

PATIENT
  Age: 16 Year
  Sex: Male
  Weight: 74 kg

DRUGS (4)
  1. XYREM [Suspect]
     Indication: CATAPLEXY
     Dosage: 3 GM (1.5 GM, 2 IN 1 D), ORAL; (4.5 GM, 1 D), ORAL; (4.25 GM, 1 D), ORAL
     Route: 048
     Dates: start: 20100220, end: 20100617
  2. XYREM [Suspect]
     Indication: CATAPLEXY
     Dosage: 3 GM (1.5 GM, 2 IN 1 D), ORAL; (4.5 GM, 1 D), ORAL; (4.25 GM, 1 D), ORAL
     Route: 048
     Dates: start: 20090220
  3. XYREM [Suspect]
     Indication: CATAPLEXY
     Dosage: 3 GM (1.5 GM, 2 IN 1 D), ORAL; (4.5 GM, 1 D), ORAL; (4.25 GM, 1 D), ORAL
     Route: 048
     Dates: start: 20100101
  4. MODAFINIL [Concomitant]

REACTIONS (6)
  - AGGRESSION [None]
  - COUGH [None]
  - DYSPNOEA [None]
  - HEADACHE [None]
  - LARYNGOSPASM [None]
  - PYREXIA [None]
